FAERS Safety Report 9351792 (Version 2)
Quarter: 2013Q3

REPORT INFORMATION
  Report Type: Spontaneous
  Country: US (occurrence: US)
  Receive Date: 20130617
  Receipt Date: 20130816
  Transmission Date: 20140515
  Serious: Yes (Other)
  Sender: FDA-Public Use
  Company Number: US-BIOGENIDEC-2013BI052094

PATIENT
  Age: 46 Year
  Sex: Female

DRUGS (1)
  1. AVONEX [Suspect]
     Indication: MULTIPLE SCLEROSIS
     Route: 030
     Dates: start: 20120217

REACTIONS (12)
  - Ovarian cancer [Not Recovered/Not Resolved]
  - Loss of control of legs [Recovered/Resolved]
  - Abdominal pain upper [Not Recovered/Not Resolved]
  - General symptom [Unknown]
  - Weight decreased [Unknown]
  - Blood test abnormal [Unknown]
  - Fatigue [Not Recovered/Not Resolved]
  - Influenza like illness [Recovered/Resolved]
  - Diarrhoea [Recovered/Resolved]
  - Vomiting [Recovered/Resolved]
  - Pain in extremity [Unknown]
  - Paraesthesia [Unknown]
